FAERS Safety Report 13510688 (Version 12)
Quarter: 2018Q2

REPORT INFORMATION
  Report Type: Spontaneous
  Country: US (occurrence: US)
  Receive Date: 20170503
  Receipt Date: 20180619
  Transmission Date: 20180711
  Serious: Yes (Hospitalization)
  Sender: FDA-Public Use
  Company Number: US-ACTELION-A-US2016-142096

PATIENT
  Age: 43 Year
  Sex: Female
  Weight: 69.39 kg

DRUGS (3)
  1. VELETRI [Suspect]
     Active Substance: EPOPROSTENOL
     Dosage: 14 NG/KG, PER MIN
     Route: 042
     Dates: start: 20160811
  2. VELETRI [Suspect]
     Active Substance: EPOPROSTENOL
     Indication: PULMONARY ARTERIAL HYPERTENSION
     Dosage: 20 NG/KG, PER MIN
     Route: 042
  3. ADCIRCA [Concomitant]
     Active Substance: TADALAFIL

REACTIONS (22)
  - Asthenia [Unknown]
  - Urinary tract disorder [Unknown]
  - Dehydration [Unknown]
  - Chest pain [Unknown]
  - Swelling face [Unknown]
  - Peripheral swelling [Unknown]
  - Device leakage [Recovered/Resolved]
  - Device alarm issue [Unknown]
  - Hot flush [Unknown]
  - Dyspnoea [Recovering/Resolving]
  - Nausea [Unknown]
  - Device issue [Unknown]
  - Device related infection [Unknown]
  - Device dislocation [Unknown]
  - Vomiting [Unknown]
  - Palpitations [Unknown]
  - Flushing [Unknown]
  - Catheter placement [Unknown]
  - Stress [Unknown]
  - Pyrexia [Recovering/Resolving]
  - Chills [Unknown]
  - Device breakage [Unknown]

NARRATIVE: CASE EVENT DATE: 20160905
